FAERS Safety Report 19915046 (Version 3)
Quarter: 2021Q4

REPORT INFORMATION
  Report Type: Spontaneous
  Country: FR (occurrence: FR)
  Receive Date: 20211004
  Receipt Date: 20211223
  Transmission Date: 20220303
  Serious: Yes (Life-Threatening, Hospitalization, Other)
  Sender: FDA-Public Use
  Company Number: FR-SHR-FR-2006-005646

PATIENT
  Age: 15 Year
  Sex: Female
  Weight: 48 kg

DRUGS (3)
  1. MINOCYCLINE [Suspect]
     Active Substance: MINOCYCLINE HYDROCHLORIDE
     Indication: Acne
     Dosage: UNK,
     Route: 048
     Dates: start: 20040915, end: 20050815
  2. DIANE (CYPROTERONE ACETATE\ETHINYL ESTRADIOL) [Suspect]
     Active Substance: CYPROTERONE ACETATE\ETHINYL ESTRADIOL
     Indication: Acne
     Dosage: 2/0.035 MILLIGRAM
     Route: 048
     Dates: start: 20050815, end: 20060215
  3. MINERVA [Suspect]
     Active Substance: CYPROTERONE ACETATE\ETHINYL ESTRADIOL
     Indication: Acne
     Dosage: UNK

REACTIONS (19)
  - Intracardiac thrombus [Unknown]
  - Dyspnoea [Recovered/Resolved with Sequelae]
  - Pulmonary embolism [Recovered/Resolved with Sequelae]
  - Movement disorder [Recovered/Resolved with Sequelae]
  - Pyrexia [Unknown]
  - Arthralgia [Unknown]
  - Asthenia [Unknown]
  - Autoantibody positive [Unknown]
  - Systemic lupus erythematosus [Unknown]
  - Antineutrophil cytoplasmic antibody positive [Unknown]
  - Eosinophilia [Unknown]
  - Antiphospholipid antibodies positive [Unknown]
  - Deep vein thrombosis [Recovered/Resolved with Sequelae]
  - Transaminases increased [Unknown]
  - Myalgia [Unknown]
  - Abdominal pain [Unknown]
  - Pain in extremity [Recovered/Resolved with Sequelae]
  - Depression [Unknown]
  - Quality of life decreased [Unknown]

NARRATIVE: CASE EVENT DATE: 20060101
